FAERS Safety Report 9495334 (Version 1)
Quarter: 2013Q3

REPORT INFORMATION
  Report Type: Spontaneous
  Country: US (occurrence: US)
  Receive Date: 20130903
  Receipt Date: 20130903
  Transmission Date: 20140515
  Serious: Yes (Other)
  Sender: FDA-Public Use
  Company Number: US-GLAXOSMITHKLINE-A1039535A

PATIENT
  Age: 68 Year
  Sex: Female

DRUGS (3)
  1. ADVAIR [Suspect]
     Indication: CHRONIC OBSTRUCTIVE PULMONARY DISEASE
     Dosage: 1PUFF TWICE PER DAY
     Route: 055
     Dates: start: 2009
  2. NEXIUM [Concomitant]
  3. CRESTOR [Concomitant]

REACTIONS (5)
  - Cataract operation [Unknown]
  - Cataract [Unknown]
  - Eye irritation [Unknown]
  - Tooth discolouration [Not Recovered/Not Resolved]
  - Tooth disorder [Not Recovered/Not Resolved]
